FAERS Safety Report 4327717-1 (Version None)
Quarter: 2004Q1

REPORT INFORMATION
  Report Type: 
  Country: None (occurrence: None)
  Receive Date: 20040325
  Receipt Date: 20020930
  Transmission Date: 20041129
  Serious: Yes (Hospitalization)
  Sender: FDA-Public Use
  Company Number: 2002IC000281

PATIENT
  Age: 58 Year
  Sex: Male

DRUGS (4)
  1. FLUOROURACIL [Suspect]
     Indication: COLON CANCER
     Dosage: 750 MG; DAILY; INTRAVENOUS
     Route: 042
     Dates: start: 20020319, end: 20020601
  2. DIOVAN [Concomitant]
  3. NOVONORM [Concomitant]
  4. PREDNISONE [Concomitant]

REACTIONS (2)
  - CHRONIC INFLAMMATORY DEMYELINATING POLYRADICULONEUROPATHY [None]
  - DISEASE PROGRESSION [None]
